FAERS Safety Report 6678281-3 (Version None)
Quarter: 2010Q2

REPORT INFORMATION
  Report Type: 
  Country: None (occurrence: None)
  Receive Date: 20100412
  Receipt Date: 20100402
  Transmission Date: 20101027
  Serious: Yes (Hospitalization)
  Sender: FDA-Public Use
  Company Number: JP-BRISTOL-MYERS SQUIBB COMPANY-15055536

PATIENT
  Age: 16 Year
  Sex: Male

DRUGS (1)
  1. ABILIFY [Suspect]
     Indication: ASPERGER'S DISORDER
     Dosage: 12JUL2009-UNK:3MG,UNK-UNK:6MG,UNK-UNK:9MG,UNK-28DEC09:6MG
     Route: 048
     Dates: start: 20090712, end: 20091228

REACTIONS (2)
  - CORNEAL DISORDER [None]
  - CORNEAL OEDEMA [None]
